FAERS Safety Report 14392340 (Version 6)
Quarter: 2022Q3

REPORT INFORMATION
  Report Type: Spontaneous
  Country: ES (occurrence: ES)
  Receive Date: 20180116
  Receipt Date: 20220719
  Transmission Date: 20221026
  Serious: Yes (Hospitalization, Other)
  Sender: FDA-Public Use
  Company Number: ES-VIIV HEALTHCARE LIMITED-ES2018GSK004150

PATIENT

DRUGS (2)
  1. TRIUMEQ [Suspect]
     Active Substance: ABACAVIR SULFATE\DOLUTEGRAVIR SODIUM\LAMIVUDINE
     Indication: HIV infection
     Dosage: UNK
     Dates: start: 201701, end: 20171228
  2. IBUPROFEN [Concomitant]
     Active Substance: IBUPROFEN
     Indication: Post-traumatic pain
     Dosage: UNK

REACTIONS (10)
  - Drug-induced liver injury [Not Recovered/Not Resolved]
  - Subacute hepatic failure [Not Recovered/Not Resolved]
  - Hepatitis [Unknown]
  - Hepatic haemorrhage [Unknown]
  - Hepatic necrosis [Recovering/Resolving]
  - Coagulopathy [Not Recovered/Not Resolved]
  - Jaundice [Recovering/Resolving]
  - Nausea [Recovering/Resolving]
  - Hepatic lymphocytic infiltration [Unknown]
  - Abdominal pain [Unknown]

NARRATIVE: CASE EVENT DATE: 20171228
